FAERS Safety Report 10530792 (Version 1)
Quarter: 2014Q4

REPORT INFORMATION
  Report Type: Spontaneous
  Country: US (occurrence: US)
  Receive Date: 20141021
  Receipt Date: 20141021
  Transmission Date: 20150528
  Serious: Yes (Other)
  Sender: FDA-Public Use
  Company Number: US-CUBIST PHARMACEUTICALS, INC.-2014CBST001404

PATIENT

DRUGS (22)
  1. HYDROMORPHONE [Concomitant]
     Active Substance: HYDROMORPHONE
     Indication: ABDOMINAL PAIN
     Dosage: UNK UNK, PRN
     Route: 042
  2. MICAFUNGIN [Concomitant]
     Active Substance: MICAFUNGIN
     Indication: STAPHYLOCOCCAL SEPSIS
     Dosage: 100 MG, QD
     Route: 042
  3. DOCUSATE SODIUM AND SENNA [Concomitant]
     Active Substance: DOCUSATE SODIUM\SENNOSIDES
     Indication: PRODUCT USED FOR UNKNOWN INDICATION
     Dosage: 50 AND 8.6 MG, RESPECTIVELY, Q12H
     Route: 048
  4. CUBICIN [Suspect]
     Active Substance: DAPTOMYCIN
     Indication: OFF LABEL USE
  5. AZTREONAM. [Concomitant]
     Active Substance: AZTREONAM
     Indication: STAPHYLOCOCCAL SEPSIS
     Dosage: 2 G, SINGLE
     Route: 042
  6. HYDROXYCHLOROQUINE [Concomitant]
     Active Substance: HYDROXYCHLOROQUINE
     Indication: PRODUCT USED FOR UNKNOWN INDICATION
     Dosage: 200 MG, DAILY
     Route: 048
  7. WARFARIN [Concomitant]
     Active Substance: WARFARIN
     Indication: ANTICOAGULATION DRUG LEVEL
     Dosage: UNK UNK, UNK
     Route: 048
  8. PANTOPRAZOLE [Concomitant]
     Active Substance: PANTOPRAZOLE SODIUM
     Indication: PRODUCT USED FOR UNKNOWN INDICATION
     Dosage: 40 MG, DAILY
     Route: 048
  9. LEVETIRACETAM. [Concomitant]
     Active Substance: LEVETIRACETAM
     Indication: PRODUCT USED FOR UNKNOWN INDICATION
     Dosage: 500 MG, Q12H
     Route: 048
  10. MULTIVITAMINS, PLAIN [Concomitant]
     Active Substance: VITAMINS
     Indication: PRODUCT USED FOR UNKNOWN INDICATION
  11. CUBICIN [Suspect]
     Active Substance: DAPTOMYCIN
     Indication: STAPHYLOCOCCAL SEPSIS
     Dosage: 6 MG/KG, Q48H
     Route: 042
  12. OXYCODONE [Concomitant]
     Active Substance: OXYCODONE
     Indication: PRODUCT USED FOR UNKNOWN INDICATION
     Dosage: 40 MG, BID
     Route: 048
  13. METOPROLOL [Concomitant]
     Active Substance: METOPROLOL
     Indication: PRODUCT USED FOR UNKNOWN INDICATION
     Dosage: 50 MG, Q12H
     Route: 048
  14. PREDNISONE. [Concomitant]
     Active Substance: PREDNISONE
     Indication: PRODUCT USED FOR UNKNOWN INDICATION
     Dosage: 5 MG, DAILY
     Route: 048
  15. METOCLOPRAMIDE. [Concomitant]
     Active Substance: METOCLOPRAMIDE
     Indication: PRODUCT USED FOR UNKNOWN INDICATION
     Dosage: 5 MG, Q8H
     Route: 048
  16. ACETAMINOPHEN. [Concomitant]
     Active Substance: ACETAMINOPHEN
     Indication: PRODUCT USED FOR UNKNOWN INDICATION
     Dosage: 650 MG, Q6H AS NEEDED
     Route: 048
  17. METRONIDAZOLE. [Concomitant]
     Active Substance: METRONIDAZOLE
     Indication: STAPHYLOCOCCAL SEPSIS
     Dosage: 500 MG, Q8H
     Route: 042
  18. NALBUPHINE HYDROCHLORIDE. [Suspect]
     Active Substance: NALBUPHINE HYDROCHLORIDE
     Indication: PRURITUS
     Dosage: 2.5 MG, UNK
     Route: 042
  19. AZTREONAM. [Concomitant]
     Active Substance: AZTREONAM
     Dosage: 500 MG, Q12H
     Route: 042
  20. HEPARIN [Concomitant]
     Active Substance: HEPARIN SODIUM
     Indication: ANTICOAGULATION DRUG LEVEL
     Dosage: UNK UNK, UNK
     Route: 042
  21. HYDROCORTISONE. [Concomitant]
     Active Substance: HYDROCORTISONE
     Indication: PRODUCT USED FOR UNKNOWN INDICATION
     Dosage: 100 MG, Q6H
     Route: 042
  22. MULTIVITAMINS, PLAIN [Concomitant]
     Active Substance: VITAMINS
     Indication: PRODUCT USED FOR UNKNOWN INDICATION
     Dosage: UNK UNK, QD
     Route: 048

REACTIONS (12)
  - Pruritus [Not Recovered/Not Resolved]
  - Off label use [Unknown]
  - Headache [None]
  - Formication [None]
  - Tachycardia [None]
  - Blood pressure increased [None]
  - Haemoglobin decreased [None]
  - Somnolence [None]
  - Blood creatinine increased [None]
  - Acute psychosis [Recovered/Resolved]
  - Hypothermia [None]
  - Blood phosphorus increased [None]
